FAERS Safety Report 6472419-9 (Version None)
Quarter: 2009Q4

REPORT INFORMATION
  Report Type: 
  Country: None (occurrence: None)
  Receive Date: 20091201
  Receipt Date: 20091118
  Transmission Date: 20100525
  Serious: Yes (Hospitalization)
  Sender: FDA-Public Use
  Company Number: 232973K09USA

PATIENT
  Age: 59 Year
  Sex: Male

DRUGS (10)
  1. REBIF [Suspect]
     Indication: MULTIPLE SCLEROSIS
     Dosage: 44 MCG, 3 IN 1 WEEKS,
     Dates: start: 20080312
  2. ACTOS [Concomitant]
  3. CRESTOR [Concomitant]
  4. LEVOTHYROXINE (LEVOTHYROXINE /00068001/) [Concomitant]
  5. FLOMAX (MORNIFLUMATE) [Concomitant]
  6. BACLONFEN (BACLOFEN) [Concomitant]
  7. RAZADYNE [Concomitant]
  8. DEPAKOTE [Concomitant]
  9. PROVIGIL [Concomitant]
  10. LEXAPRO [Concomitant]

REACTIONS (2)
  - DYSURIA [None]
  - PROSTATE CANCER [None]
